FAERS Safety Report 19960836 (Version 1)
Quarter: 2021Q4

REPORT INFORMATION
  Report Type: Other
  Country: US (occurrence: US)
  Receive Date: 20211016
  Receipt Date: 20211016
  Transmission Date: 20220304
  Serious: Yes (Death)
  Sender: FDA-Public Use
  Company Number: US-ROCHE-2933916

PATIENT
  Sex: Male

DRUGS (1)
  1. OCREVUS [Suspect]
     Active Substance: OCRELIZUMAB
     Indication: Relapsing multiple sclerosis
     Dosage: DATE OF TREATMENT: 16/AUG/2019, 27/JAN/2020, 15/JUL/2020, 23/DEC/2020, 09/JUN/2021
     Route: 042
     Dates: start: 20190730, end: 20210609

REACTIONS (1)
  - COVID-19 [Fatal]
